FAERS Safety Report 14683342 (Version 1)
Quarter: 2018Q1

REPORT INFORMATION
  Report Type: Spontaneous
  Country: US (occurrence: US)
  Receive Date: 20180327
  Receipt Date: 20180327
  Transmission Date: 20180509
  Serious: No
  Sender: FDA-Public Use
  Company Number: US-PFIZER INC-2018122032

PATIENT
  Age: 61 Year
  Sex: Female
  Weight: 72 kg

DRUGS (1)
  1. AROMASIN [Suspect]
     Active Substance: EXEMESTANE
     Indication: BREAST CANCER METASTATIC
     Dosage: 1 DF, DAILY
     Dates: start: 201711, end: 20180228

REACTIONS (17)
  - Eating disorder [Unknown]
  - Skin disorder [Recovering/Resolving]
  - Abdominal discomfort [Unknown]
  - Appetite disorder [Unknown]
  - Hot flush [Not Recovered/Not Resolved]
  - Lip dry [Unknown]
  - Candida infection [Not Recovered/Not Resolved]
  - Gingival bleeding [Unknown]
  - Tremor [Unknown]
  - Oral disorder [Unknown]
  - Neoplasm progression [Unknown]
  - Body height decreased [Unknown]
  - Dysgeusia [Recovering/Resolving]
  - Memory impairment [Unknown]
  - Acne [Recovering/Resolving]
  - Dry mouth [Unknown]
  - Fatigue [Unknown]
